FAERS Safety Report 9727041 (Version 4)
Quarter: 2014Q1

REPORT INFORMATION
  Report Type: Spontaneous
  Country: US (occurrence: US)
  Receive Date: 20131203
  Receipt Date: 20140121
  Transmission Date: 20141002
  Serious: Yes (Other)
  Sender: FDA-Public Use
  Company Number: US-PFIZER INC-2013343439

PATIENT
  Age: 52 Year
  Sex: Female

DRUGS (2)
  1. RAMIPRIL [Suspect]
     Indication: HYPERTENSION
     Dosage: 5 MG, DAILY
     Route: 048
     Dates: start: 20130303, end: 20131123
  2. LEVOTHYROXINE [Concomitant]
     Indication: HYPOTHYROIDISM
     Dosage: 50 UG, DAILY
     Dates: start: 2009

REACTIONS (6)
  - Angioedema [Recovered/Resolved]
  - Choking [Unknown]
  - Headache [Unknown]
  - Dysphagia [Unknown]
  - Panic attack [Unknown]
  - Weight increased [Unknown]
